FAERS Safety Report 6548217-4 (Version None)
Quarter: 2010Q1

REPORT INFORMATION
  Report Type: 
  Country: None (occurrence: None)
  Receive Date: 20100124
  Receipt Date: 20090601
  Transmission Date: 20100710
  Serious: No
  Sender: FDA-Public Use
  Company Number: US-ALLERGAN-0903699US

PATIENT
  Sex: Female
  Weight: 47.619 kg

DRUGS (5)
  1. RESTASIS [Suspect]
     Indication: DRY EYE
     Dosage: UNK, QD
     Route: 047
     Dates: start: 20040101, end: 20081001
  2. RESTASIS [Suspect]
     Indication: KERATOCONJUNCTIVITIS SICCA
     Dosage: UNK, BID
     Route: 047
     Dates: start: 20081001
  3. RESTASIS [Suspect]
     Dosage: UNK, BID
     Route: 047
     Dates: end: 20090401
  4. STEROID [Concomitant]
     Indication: EYE INFLAMMATION
     Route: 047
     Dates: start: 20090316
  5. LUBRICANT EYE DROPS [Concomitant]
     Route: 047

REACTIONS (5)
  - EYE INFLAMMATION [None]
  - EYE IRRITATION [None]
  - INCORRECT DOSE ADMINISTERED [None]
  - OCULAR HYPERAEMIA [None]
  - PHOTOPHOBIA [None]
